FAERS Safety Report 7279585-6 (Version None)
Quarter: 2011Q1

REPORT INFORMATION
  Report Type: 
  Country: None (occurrence: None)
  Receive Date: 20110203
  Receipt Date: 20110203
  Transmission Date: 20110831
  Serious: No
  Sender: FDA-Public Use
  Company Number: None

PATIENT
  Sex: Female

DRUGS (2)
  1. VENLAFAXINE [Suspect]
     Indication: INSOMNIA
     Dosage: 75 MG ER CAP TEVA BEDTIME
     Dates: start: 20110105
  2. VENLAFAXINE [Suspect]
     Indication: FIBROMYALGIA
     Dosage: 75 MG ER CAP TEVA BEDTIME
     Dates: start: 20110105

REACTIONS (6)
  - PRODUCT SUBSTITUTION ISSUE [None]
  - INSOMNIA [None]
  - DISTURBANCE IN ATTENTION [None]
  - DISORIENTATION [None]
  - HEADACHE [None]
  - DIZZINESS [None]
